FAERS Safety Report 8337670-1 (Version None)
Quarter: 2012Q2

REPORT INFORMATION
  Report Type: 
  Country: None (occurrence: None)
  Receive Date: 20120504
  Receipt Date: 20120504
  Transmission Date: 20120825
  Serious: Yes (Other)
  Sender: FDA-Public Use
  Company Number: None

PATIENT
  Age: 55 Year
  Sex: Female
  Weight: 77.11 kg

DRUGS (1)
  1. DICLOFENAC SODIUM [Suspect]
     Indication: CARDIAC FLUTTER
     Dosage: |STRENGTH: 75MG|
     Dates: start: 20120301, end: 20120401

REACTIONS (1)
  - CARDIAC FLUTTER [None]
